FAERS Safety Report 26119440 (Version 1)
Quarter: 2025Q4

REPORT INFORMATION
  Report Type: Spontaneous
  Country: CA (occurrence: CA)
  Receive Date: 20251204
  Receipt Date: 20251204
  Transmission Date: 20260118
  Serious: Yes (Hospitalization)
  Sender: Kenvue
  Company Number: CA-KENVUE-20251110499

PATIENT
  Age: 3 Year
  Weight: 13 kg

DRUGS (1)
  1. ACETAMINOPHEN [Suspect]
     Active Substance: ACETAMINOPHEN
     Indication: Headache
     Dosage: UNK UNK, EVERY 4 HOUR

REACTIONS (2)
  - Medication overuse headache [Recovered/Resolved]
  - Vomiting [Recovered/Resolved]
